FAERS Safety Report 4526299-9 (Version None)
Quarter: 2004Q4

REPORT INFORMATION
  Report Type: 
  Country: None (occurrence: None)
  Receive Date: 20041201
  Receipt Date: 20041026
  Transmission Date: 20050328
  Serious: Yes (Hospitalization)
  Sender: FDA-Public Use
  Company Number: US096999

PATIENT
  Age: 82 Year
  Sex: Female

DRUGS (3)
  1. ENBREL [Suspect]
     Indication: RHEUMATOID ARTHRITIS
     Dosage: 25 MG, 2 IN 1 WEEKS, SC
     Route: 058
     Dates: start: 20031201, end: 20041007
  2. VALDECOXIB [Concomitant]
  3. ALENDRONATE SODIUM [Concomitant]

REACTIONS (3)
  - GENITAL ULCERATION [None]
  - PANCYTOPENIA [None]
  - PYREXIA [None]
